FAERS Safety Report 12669332 (Version 1)
Quarter: 2016Q3

REPORT INFORMATION
  Report Type: Spontaneous
  Country: IT (occurrence: IT)
  Receive Date: 20160819
  Receipt Date: 20160819
  Transmission Date: 20161109
  Serious: Yes (Life-Threatening)
  Sender: FDA-Public Use
  Company Number: IT-PFIZER INC-2016391908

PATIENT
  Age: 66 Year
  Sex: Male
  Weight: 95 kg

DRUGS (5)
  1. TAZOCIN [Suspect]
     Active Substance: PIPERACILLIN SODIUM\TAZOBACTAM SODIUM
     Indication: PYELONEPHRITIS ACUTE
     Dosage: 4 G, DAILY
     Route: 041
     Dates: start: 20151007, end: 20151007
  2. PARACETAMOL [Concomitant]
     Active Substance: ACETAMINOPHEN
     Indication: HYPERTHERMIA
     Dosage: 1000 MG, UNK
     Route: 042
  3. LOSARTAN. [Concomitant]
     Active Substance: LOSARTAN
     Indication: HYPERTENSION
     Dosage: 50 MG, UNK
     Route: 048
  4. INSULIN [Concomitant]
     Active Substance: INSULIN NOS
     Indication: HYPERGLYCAEMIA
     Dosage: UNK
     Route: 058
  5. LANTUS [Concomitant]
     Active Substance: INSULIN GLARGINE
     Indication: HYPERGLYCAEMIA
     Dosage: UNK
     Route: 058

REACTIONS (4)
  - Dyspnoea [Recovered/Resolved]
  - Hypotension [Recovered/Resolved]
  - Respiratory arrest [Recovered/Resolved]
  - Hyperhidrosis [Recovered/Resolved]

NARRATIVE: CASE EVENT DATE: 20151007
